FAERS Safety Report 15853255 (Version 1)
Quarter: 2019Q1

REPORT INFORMATION
  Report Type: Spontaneous
  Country: US (occurrence: US)
  Receive Date: 20190119
  Receipt Date: 20190119
  Transmission Date: 20190417
  Serious: Yes (Disabling)
  Sender: FDA-Public Use
  Company Number: None

PATIENT
  Age: 30 Year
  Sex: Female
  Weight: 72 kg

DRUGS (8)
  1. CLONEZEPAM [Concomitant]
  2. VITAMIN B COMPLEX [Concomitant]
     Active Substance: CYANOCOBALAMIN\DEXPANTHENOL\NIACINAMIDE\PYRIDOXINE HYDROCHLORIDE\RIBOFLAVIN 5^-PHOSPHATE SODIUM\THIAMINE HYDROCHLORIDE\VITAMIN B COMPLEX
  3. AVELOX [Suspect]
     Active Substance: MOXIFLOXACIN HYDROCHLORIDE
     Indication: UREAPLASMAL VULVOVAGINITIS
     Dosage: ?          QUANTITY:10 TABLET(S);?
     Route: 048
  4. MIRENA [Concomitant]
     Active Substance: LEVONORGESTREL
  5. PROZAC [Concomitant]
     Active Substance: FLUOXETINE HYDROCHLORIDE
  6. IBUPROFEN. [Concomitant]
     Active Substance: IBUPROFEN
  7. AVELOX [Suspect]
     Active Substance: MOXIFLOXACIN HYDROCHLORIDE
     Indication: UREAPLASMA INFECTION
     Dosage: ?          QUANTITY:10 TABLET(S);?
     Route: 048
  8. VITAMIN D [Concomitant]
     Active Substance: CHOLECALCIFEROL

REACTIONS (6)
  - Muscular weakness [None]
  - Gait disturbance [None]
  - Dysstasia [None]
  - Pelvic floor dyssynergia [None]
  - Arthralgia [None]
  - Vestibulitis [None]

NARRATIVE: CASE EVENT DATE: 20180615
